FAERS Safety Report 8514406-2 (Version None)
Quarter: 2012Q3

REPORT INFORMATION
  Report Type: 
  Country: None (occurrence: None)
  Receive Date: 20120717
  Receipt Date: 20120330
  Transmission Date: 20120928
  Serious: Yes (Death, Congenital Anomaly, Other)
  Sender: FDA-Public Use
  Company Number: ES-SANOFI-AVENTIS-2012SA022922

PATIENT

DRUGS (2)
  1. LANTUS [Suspect]
     Route: 065
  2. LANTUS [Suspect]
     Route: 065

REACTIONS (4)
  - MATERNAL EXPOSURE DURING PREGNANCY [None]
  - DEATH NEONATAL [None]
  - FOETAL DEATH [None]
  - CONGENITAL ANOMALY [None]
